FAERS Safety Report 12404584 (Version 2)
Quarter: 2016Q2

REPORT INFORMATION
  Report Type: Spontaneous
  Country: CA (occurrence: US)
  Receive Date: 20160525
  Receipt Date: 20160531
  Transmission Date: 20160815
  Serious: Yes (Other)
  Sender: FDA-Public Use
  Company Number: CA-PFIZER INC-2016270140

PATIENT
  Age: 40 Year
  Sex: Female
  Weight: 53.61 kg

DRUGS (1)
  1. CYTOMEL [Suspect]
     Active Substance: LIOTHYRONINE SODIUM
     Indication: HYPOTHYROIDISM
     Dosage: UNK

REACTIONS (3)
  - Malaise [Unknown]
  - Antibody test abnormal [Unknown]
  - Coeliac disease [Not Recovered/Not Resolved]
